FAERS Safety Report 9258311 (Version 1)
Quarter: 2013Q2

REPORT INFORMATION
  Report Type: Spontaneous
  Country: ES (occurrence: None)
  Receive Date: 20130422
  Receipt Date: 20130422
  Transmission Date: 20140414
  Serious: Yes (Death, Life-Threatening, Hospitalization)
  Sender: FDA-Public Use
  Company Number: FK201301240

PATIENT
  Age: 67 Year
  Sex: Male

DRUGS (6)
  1. TRANEXAMIC ACID [Suspect]
     Indication: PRODUCT USED FOR UNKNOWN INDICATION
     Dosage: 1000 MG, 1 IN 8 HR, ORAL
     Route: 048
  2. SPIRONOLACTONE (SPIRONOLACTONE) [Concomitant]
  3. FUROSEMIDE (FUROSEMIDE) [Concomitant]
  4. OMEPRAZOLE (OMEPRAZOLE) [Concomitant]
  5. LACTULOSE (LACUTLOSE) [Concomitant]
  6. BISOPROLOL (BISOPROLOL) [Concomitant]

REACTIONS (8)
  - Toxic epidermal necrolysis [None]
  - Multi-organ failure [None]
  - Renal failure acute [None]
  - Skin toxicity [None]
  - Hypotension [None]
  - Respiratory tract infection [None]
  - Haemofiltration [None]
  - No therapeutic response [None]
